FAERS Safety Report 10527852 (Version 2)
Quarter: 2015Q1

REPORT INFORMATION
  Report Type: Spontaneous
  Country: US (occurrence: US)
  Receive Date: 20141020
  Receipt Date: 20150129
  Transmission Date: 20150720
  Serious: No
  Sender: FDA-Public Use
  Company Number: US-PFIZER INC-2014281457

PATIENT
  Age: 78 Year
  Sex: Male

DRUGS (3)
  1. INLYTA [Suspect]
     Active Substance: AXITINIB
     Indication: METASTATIC RENAL CELL CARCINOMA
     Dosage: 5 MG, UNK
     Dates: start: 20140908, end: 20140924
  2. OXYCODONE [Concomitant]
     Active Substance: OXYCODONE
     Dosage: UNK
  3. MORPHINE [Concomitant]
     Active Substance: MORPHINE
     Dosage: UNK
     Dates: end: 20150116

REACTIONS (3)
  - Stomatitis [Not Recovered/Not Resolved]
  - Swelling [Unknown]
  - Myalgia [Unknown]

NARRATIVE: CASE EVENT DATE: 2014
